FAERS Safety Report 4727479-X (Version None)
Quarter: 2005Q3

REPORT INFORMATION
  Report Type: 
  Country: None (occurrence: None)
  Receive Date: 20050728
  Receipt Date: 20050713
  Transmission Date: 20060218
  Serious: Yes (Death)
  Sender: FDA-Public Use
  Company Number: IE-ROCHE-410936

PATIENT
  Sex: Female

DRUGS (1)
  1. BONDRONAT [Suspect]
     Route: 048

REACTIONS (2)
  - DISEASE PROGRESSION [None]
  - OESOPHAGEAL ULCER [None]
